FAERS Safety Report 19981504 (Version 2)
Quarter: 2021Q4

REPORT INFORMATION
  Report Type: Spontaneous
  Country: BR (occurrence: BR)
  Receive Date: 20211021
  Receipt Date: 20211029
  Transmission Date: 20220303
  Serious: Yes (Other)
  Sender: FDA-Public Use
  Company Number: BR-AMGEN-BRASP2021158458

PATIENT
  Age: 41 Year
  Sex: Female
  Weight: 44.1 kg

DRUGS (9)
  1. CISPLATIN [Suspect]
     Active Substance: CISPLATIN
     Indication: Product used for unknown indication
     Dosage: 42 MILLIGRAM
     Route: 065
     Dates: start: 20210218
  2. PACLITAXEL [Suspect]
     Active Substance: PACLITAXEL
     Indication: Product used for unknown indication
     Dosage: 253 MILLIGRAM
     Route: 065
     Dates: start: 20210626
  3. BEVACIZUMAB [Suspect]
     Active Substance: BEVACIZUMAB
     Indication: Product used for unknown indication
     Dosage: UNK UNK, Q3WK
     Route: 065
     Dates: start: 20210123
  4. BEVACIZUMAB [Suspect]
     Active Substance: BEVACIZUMAB
     Dosage: UNK UNK, Q3WK
     Route: 065
  5. GEMCITABINE [Suspect]
     Active Substance: GEMCITABINE
     Indication: Product used for unknown indication
     Dosage: 1050 MILLIGRAM
     Route: 065
     Dates: start: 20210218
  6. CARBOPLATIN [Suspect]
     Active Substance: CARBOPLATIN
     Indication: Product used for unknown indication
     Dosage: 650 MILLIGRAM
     Route: 065
     Dates: start: 20210626
  7. CARBOPLATIN [Suspect]
     Active Substance: CARBOPLATIN
     Dosage: 530 MILLIGRAM
     Route: 065
  8. TOPOTECAN [Suspect]
     Active Substance: TOPOTECAN HYDROCHLORIDE
     Indication: Product used for unknown indication
     Dosage: UNK UNK, QWK
     Route: 065
     Dates: start: 20210123
  9. PEGFILGRASTIM [Concomitant]
     Active Substance: PEGFILGRASTIM
     Dosage: 6 MILLIGRAM, Q3WK
     Route: 058
     Dates: start: 20210123

REACTIONS (23)
  - Shigella infection [Unknown]
  - Biliary dilatation [Unknown]
  - Thrombocytopenia [Unknown]
  - Mass [Not Recovered/Not Resolved]
  - Constipation [Unknown]
  - Fatigue [Unknown]
  - Gene mutation [Unknown]
  - Vomiting [Unknown]
  - Epigastric discomfort [Unknown]
  - Abdominal pain upper [Unknown]
  - Atelectasis [Unknown]
  - Peritoneal disorder [Unknown]
  - Osteopenia [Unknown]
  - Thyroid mass [Not Recovered/Not Resolved]
  - Depression [Unknown]
  - Transfusion reaction [Unknown]
  - Pulmonary mass [Unknown]
  - Breast calcifications [Unknown]
  - Decreased appetite [Unknown]
  - Weight decreased [Unknown]
  - Gastric hypermotility [Unknown]
  - Eructation [Unknown]
  - Diarrhoea [Unknown]

NARRATIVE: CASE EVENT DATE: 20200601
